FAERS Safety Report 14215144 (Version 2)
Quarter: 2018Q4

REPORT INFORMATION
  Report Type: Spontaneous
  Country: US (occurrence: US)
  Receive Date: 20171122
  Receipt Date: 20181113
  Transmission Date: 20190204
  Serious: No
  Sender: FDA-Public Use
  Company Number: US-ROCHE-1984401

PATIENT
  Sex: Female

DRUGS (3)
  1. PERJETA [Suspect]
     Active Substance: PERTUZUMAB
     Indication: BREAST CANCER FEMALE
     Route: 042
  2. HERCEPTIN [Suspect]
     Active Substance: TRASTUZUMAB
     Indication: BREAST CANCER FEMALE
     Route: 042
  3. HERCEPTIN [Suspect]
     Active Substance: TRASTUZUMAB
     Route: 042

REACTIONS (8)
  - Abdominal discomfort [Unknown]
  - Myalgia [Unknown]
  - Constipation [Unknown]
  - Hallucination [Unknown]
  - Nausea [Unknown]
  - Dizziness [Unknown]
  - Asthenia [Unknown]
  - Pruritus [Unknown]
